FAERS Safety Report 5389122-9 (Version None)
Quarter: 2007Q3

REPORT INFORMATION
  Report Type: 
  Country: None (occurrence: None)
  Receive Date: 20070713
  Receipt Date: 20070713
  Transmission Date: 20080115
  Serious: Yes (Hospitalization)
  Sender: FDA-Public Use
  Company Number: None

PATIENT
  Age: 68 Year
  Sex: Female

DRUGS (2)
  1. INTEGRILIN [Suspect]
     Indication: CORONARY ANGIOPLASTY
     Dates: start: 20060307, end: 20060307
  2. LOVENOX [Suspect]
     Indication: MYOCARDIAL INFARCTION
     Dosage: 100 MG BID SQ
     Route: 058
     Dates: start: 20060312, end: 20060317

REACTIONS (2)
  - HEPARIN-INDUCED THROMBOCYTOPENIA [None]
  - RETROPERITONEAL HAEMORRHAGE [None]
